FAERS Safety Report 9605178 (Version 7)
Quarter: 2015Q1

REPORT INFORMATION
  Report Type: Report from Study
  Country: US (occurrence: US)
  Receive Date: 20131008
  Receipt Date: 20150217
  Transmission Date: 20150721
  Serious: Yes (Life-Threatening, Other)
  Sender: FDA-Public Use
  Company Number: US-GLAXOSMITHKLINE-A1043983B

PATIENT
  Age: 0 Year
  Sex: Female
  Weight: 2.7 kg

DRUGS (9)
  1. PREDNISONE. [Concomitant]
     Active Substance: PREDNISONE
     Indication: SYSTEMIC LUPUS ERYTHEMATOSUS
     Route: 048
     Dates: start: 20110505
  2. BABY ASPIRIN [Concomitant]
     Active Substance: ASPIRIN
     Dates: start: 20051205
  3. IRON [Concomitant]
     Active Substance: IRON
  4. MYCOPHENOLATE [Concomitant]
     Active Substance: MYCOPHENOLIC ACID
     Dates: start: 20110804, end: 20120706
  5. BELIMUMAB [Suspect]
     Active Substance: BELIMUMAB
     Indication: SYSTEMIC LUPUS ERYTHEMATOSUS
     Dosage: 616 MG, Z
     Route: 064
     Dates: start: 20120612
  6. FOLIC ACID. [Concomitant]
     Active Substance: FOLIC ACID
  7. VITAMIN C [Concomitant]
     Active Substance: ASCORBIC ACID
  8. PEPCID [Concomitant]
     Active Substance: FAMOTIDINE
  9. PLAQUENIL [Concomitant]
     Active Substance: HYDROXYCHLOROQUINE SULFATE

REACTIONS (13)
  - Foetal heart rate deceleration abnormality [Recovered/Resolved]
  - Exposure during breast feeding [Unknown]
  - Tachycardia foetal [Not Recovered/Not Resolved]
  - Torticollis [Not Recovered/Not Resolved]
  - Ascites [Recovered/Resolved]
  - Skin oedema [Recovered/Resolved]
  - Polyhydramnios [Unknown]
  - Hydrops foetalis [Recovered/Resolved]
  - Sinus tachycardia [Recovered/Resolved]
  - Tricuspid valve incompetence [Recovered/Resolved]
  - Foetal exposure during pregnancy [Unknown]
  - Echocardiogram abnormal [Unknown]
  - Pleural effusion [Unknown]

NARRATIVE: CASE EVENT DATE: 20130412
